FAERS Safety Report 6893654-1 (Version None)
Quarter: 2010Q3

REPORT INFORMATION
  Report Type: 
  Country: None (occurrence: None)
  Receive Date: 20100731
  Receipt Date: 20091111
  Transmission Date: 20110219
  Serious: No
  Sender: FDA-Public Use
  Company Number: US-PFIZER INC-2009275619

PATIENT
  Sex: Female

DRUGS (2)
  1. LIPITOR [Suspect]
  2. SIMVASTATIN [Suspect]

REACTIONS (2)
  - MUSCLE DISORDER [None]
  - NERVOUS SYSTEM DISORDER [None]
